FAERS Safety Report 8540219-1 (Version None)
Quarter: 2012Q3

REPORT INFORMATION
  Report Type: 
  Country: None (occurrence: None)
  Receive Date: 20120726
  Receipt Date: 20120719
  Transmission Date: 20120928
  Serious: Yes (Death, Hospitalization, Other)
  Sender: FDA-Public Use
  Company Number: DE-ROCHE-1092287

PATIENT
  Sex: Male
  Weight: 87.5 kg

DRUGS (11)
  1. DEKRISTOL [Concomitant]
     Dosage: 11 TBL/ALL 2 WEEKS
     Dates: start: 20110310
  2. MIRCERA [Suspect]
     Indication: ANAEMIA
     Dosage: LAST DOSE PRIOR TO SAE: 11/JAN/2012
     Route: 042
     Dates: start: 20110310
  3. FERRLECIT [Concomitant]
     Dates: start: 20110310
  4. MARCUMAR [Concomitant]
     Dates: start: 20100611
  5. MIRCERA [Suspect]
     Indication: RENAL FAILURE CHRONIC
  6. CITALOPRAM [Concomitant]
     Dates: start: 20100611
  7. CLONAZEPAM [Concomitant]
     Dates: start: 20100611
  8. CARBIMAZOL [Concomitant]
     Dates: start: 20100726
  9. TORSEMIDE [Concomitant]
     Dates: start: 20100611
  10. DREISAVIT N [Concomitant]
     Dates: start: 20100702
  11. PANTOPRAZOLE [Concomitant]
     Dates: start: 20100611

REACTIONS (1)
  - DEATH [None]
